FAERS Safety Report 20195040 (Version 2)
Quarter: 2022Q1

REPORT INFORMATION
  Report Type: Spontaneous
  Country: IN (occurrence: IN)
  Receive Date: 20211216
  Receipt Date: 20220110
  Transmission Date: 20220423
  Serious: Yes (Death)
  Sender: FDA-Public Use
  Company Number: IN-PFIZER INC-2020072738

PATIENT
  Age: 46 Year
  Sex: Male

DRUGS (2)
  1. SUTENT [Suspect]
     Active Substance: SUNITINIB MALATE
     Indication: Metastatic renal cell carcinoma
     Dosage: 50 MG, CYCLIC (ONCE DAILY, 2 WEEKS ON AND 1 WEEK OFF)
     Route: 048
     Dates: start: 20200213
  2. SUTENT [Suspect]
     Active Substance: SUNITINIB MALATE
     Dosage: 37.5 MG, CYCLIC (1 TAB ON D1-D14, Q D21)

REACTIONS (9)
  - Neoplasm progression [Fatal]
  - Renal failure [Fatal]
  - Illness [Unknown]
  - Oral mucosal eruption [Unknown]
  - Rash [Recovering/Resolving]
  - Nasal oedema [Recovering/Resolving]
  - White blood cell count decreased [Unknown]
  - Musculoskeletal discomfort [Unknown]
  - Blood thyroid stimulating hormone increased [Unknown]

NARRATIVE: CASE EVENT DATE: 20200101
